FAERS Safety Report 8922427 (Version 2)
Quarter: 2012Q4

REPORT INFORMATION
  Report Type: 
  Country: CA (occurrence: CA)
  Receive Date: 20121123
  Receipt Date: 20121205
  Transmission Date: 20130627
  Serious: Yes (Hospitalization)
  Sender: FDA-Public Use
  Company Number: CA-B.I. PHARMACEUTICALS,INC./RIDGEFIELD-2012-CN-02269CN

PATIENT
  Age: 78 Year
  Sex: Female

DRUGS (5)
  1. PRADAX [Suspect]
     Indication: ATRIAL FIBRILLATION
     Dosage: 220 mg
     Dates: start: 201205
  2. NORVASC [Concomitant]
  3. CRESTOR [Concomitant]
  4. CIPRO [Concomitant]
     Dates: end: 201210
  5. ANTIFUNGAL [Concomitant]

REACTIONS (4)
  - Cardiac failure congestive [Not Recovered/Not Resolved]
  - Dyspnoea [Not Recovered/Not Resolved]
  - Heart rate increased [Not Recovered/Not Resolved]
  - Joint swelling [Unknown]
